FAERS Safety Report 4659989-8 (Version None)
Quarter: 2005Q2

REPORT INFORMATION
  Report Type: 
  Country: None (occurrence: None)
  Receive Date: 20050503
  Receipt Date: 20050323
  Transmission Date: 20051028
  Serious: No
  Sender: FDA-Public Use
  Company Number: US122616

PATIENT
  Age: 65 Year
  Sex: Male
  Weight: 84.3 kg

DRUGS (3)
  1. KEPIVANCE [Suspect]
     Indication: STOMATITIS
     Dosage: 60 MCG/KG, 1 IN 1 DAYS
  2. MELPHALAN [Concomitant]
  3. CYCLOPHOSPHAMIDE [Concomitant]

REACTIONS (1)
  - RASH MACULO-PAPULAR [None]
